FAERS Safety Report 16208278 (Version 1)
Quarter: 2019Q2

REPORT INFORMATION
  Report Type: Spontaneous
  Country: US (occurrence: US)
  Receive Date: 20190417
  Receipt Date: 20190417
  Transmission Date: 20190711
  Serious: Yes (Hospitalization)
  Sender: FDA-Public Use
  Company Number: US-AKORN PHARMACEUTICALS-2019AKN00738

PATIENT
  Age: 26 Year
  Sex: Female
  Weight: 83.5 kg

DRUGS (2)
  1. MYORISAN [Suspect]
     Active Substance: ISOTRETINOIN
     Dosage: 40 MG, 2X/DAY
     Route: 048
     Dates: start: 20181210, end: 20190321
  2. MYORISAN [Suspect]
     Active Substance: ISOTRETINOIN
     Indication: ACNE CYSTIC
     Dosage: 40 MG, 1X/DAY
     Route: 048
     Dates: start: 20181105, end: 20181209

REACTIONS (9)
  - Off label use [Recovered/Resolved]
  - Pilonidal cyst [Recovering/Resolving]
  - Myalgia [Unknown]
  - Chest pain [Unknown]
  - Drug ineffective [Unknown]
  - Lip dry [Unknown]
  - Abscess drainage [Recovered/Resolved]
  - Back pain [Unknown]
  - Dry skin [Unknown]

NARRATIVE: CASE EVENT DATE: 20181105
